FAERS Safety Report 10183418 (Version 2)
Quarter: 2014Q2

REPORT INFORMATION
  Report Type: Spontaneous
  Country: JP (occurrence: JP)
  Receive Date: 20140520
  Receipt Date: 20140520
  Transmission Date: 20141212
  Serious: Yes (Other)
  Sender: FDA-Public Use
  Company Number: JP-ELI_LILLY_AND_COMPANY-JP201301008687

PATIENT
  Age: 37 Year
  Sex: Female

DRUGS (16)
  1. ZYPREXA [Suspect]
     Indication: PRODUCT USED FOR UNKNOWN INDICATION
     Dosage: UNK UNK, TID
     Route: 048
  2. ZYPREXA [Suspect]
     Dosage: UNK UNK, QID
     Route: 048
     Dates: end: 201301
  3. ZYPREXA [Suspect]
     Dosage: UNK UNK, TID
     Route: 048
     Dates: start: 201301, end: 201301
  4. ZYPREXA [Suspect]
     Dosage: 7.5 MG, BID
     Route: 048
     Dates: start: 201301, end: 2013
  5. ZYPREXA [Suspect]
     Dosage: UNK, TID
     Route: 048
     Dates: start: 2013, end: 2013
  6. ZYPREXA [Suspect]
     Dosage: UNK, BID
     Route: 048
     Dates: start: 2013, end: 2013
  7. ZYPREXA [Suspect]
     Dosage: 2.5 MG, BID
     Route: 048
     Dates: start: 20130422, end: 20130620
  8. ZYPREXA [Suspect]
     Dosage: 5 MG, BID
     Route: 048
     Dates: start: 20130621
  9. ZYPREXA [Suspect]
     Dosage: 2.5 MG, BID
     Route: 048
     Dates: start: 201306, end: 20130629
  10. ZYPREXA [Suspect]
     Dosage: UNK, TID
     Route: 048
     Dates: start: 20130630
  11. ZYPREXA [Suspect]
     Dosage: 2.5 MG, BID
     Route: 048
     Dates: start: 20140418, end: 20140501
  12. ZYPREXA [Suspect]
     Dosage: 1.25 MG, QD
     Route: 048
     Dates: start: 20140502
  13. SOLANAX [Concomitant]
     Dosage: 1 DF, EACH MORNING
     Route: 048
  14. SOLANAX [Concomitant]
     Dosage: 1 DF, BID
     Route: 048
  15. SOLANAX [Concomitant]
     Dosage: 0.2 MG, BID
     Route: 048
  16. LONASEN [Concomitant]
     Dosage: UNK
     Route: 048
     Dates: start: 20140418, end: 20140502

REACTIONS (19)
  - Ovarian neoplasm [Unknown]
  - Thirst [Unknown]
  - Abdominal pain [Unknown]
  - Insomnia [Unknown]
  - Wrong technique in drug usage process [Not Recovered/Not Resolved]
  - Headache [Unknown]
  - Vaginal discharge [Not Recovered/Not Resolved]
  - Hallucination, auditory [Recovered/Resolved]
  - Increased appetite [Recovered/Resolved]
  - Hallucination, visual [Recovered/Resolved]
  - Somnolence [Unknown]
  - Hallucination, auditory [Unknown]
  - Weight increased [Unknown]
  - Menstruation delayed [Recovered/Resolved]
  - Wrong technique in drug usage process [Unknown]
  - Feeling cold [Unknown]
  - Malaise [Unknown]
  - Off label use [Unknown]
  - Eczema [Unknown]
